FAERS Safety Report 4303923-7 (Version None)
Quarter: 2004Q1

REPORT INFORMATION
  Report Type: 
  Country: None (occurrence: None)
  Receive Date: 20040225
  Receipt Date: 20030407
  Transmission Date: 20041129
  Serious: Yes (Disabling)
  Sender: FDA-Public Use
  Company Number: WAES 0304USA00753

PATIENT
  Age: 52 Year
  Sex: Male
  Weight: 118 kg

DRUGS (6)
  1. ZYRTEC [Concomitant]
  2. INDOCIN [Concomitant]
     Route: 048
     Dates: start: 19820101
  3. NAPROXEN [Concomitant]
     Dates: start: 19820101
  4. PRILOSEC [Concomitant]
  5. OXYCONTIN [Concomitant]
  6. VIOXX [Suspect]
     Indication: OSTEOARTHRITIS
     Route: 048
     Dates: start: 20000201

REACTIONS (5)
  - ACUTE MYOCARDIAL INFARCTION [None]
  - CORONARY ARTERY DISEASE [None]
  - INJURY [None]
  - ROAD TRAFFIC ACCIDENT [None]
  - SKIN LACERATION [None]
